FAERS Safety Report 18330429 (Version 2)
Quarter: 2020Q3

REPORT INFORMATION
  Report Type: Report from Study
  Country: BE (occurrence: BE)
  Receive Date: 20200930
  Receipt Date: 20200930
  Transmission Date: 20201103
  Serious: Yes (Other)
  Sender: FDA-Public Use
  Company Number: BE-SEATTLE GENETICS-2020SGN02396

PATIENT
  Sex: Female
  Weight: 60 kg

DRUGS (10)
  1. BRENTUXIMAB VEDOTIN?MPI [Suspect]
     Active Substance: BRENTUXIMAB VEDOTIN
     Indication: PERIPHERAL T-CELL LYMPHOMA UNSPECIFIED
     Dosage: 1.8 MG/KG
     Route: 065
     Dates: start: 20200608
  2. PREDNISONE. [Suspect]
     Active Substance: PREDNISONE
     Indication: PERIPHERAL T-CELL LYMPHOMA UNSPECIFIED
     Dosage: UNK
     Route: 065
     Dates: start: 20200608
  3. CO?LOSARTAN [Concomitant]
     Active Substance: HYDROCHLOROTHIAZIDE\LOSARTAN POTASSIUM
     Dosage: 50/12.5 MILLIGRAM
     Route: 065
  4. PREDNISONE. [Suspect]
     Active Substance: PREDNISONE
     Indication: ANGIOIMMUNOBLASTIC T-CELL LYMPHOMA
  5. CRESTOR [Concomitant]
     Active Substance: ROSUVASTATIN CALCIUM
     Dosage: 10 MILLIGRAM
     Route: 065
  6. CYCLOPHOSPHAMIDE. [Suspect]
     Active Substance: CYCLOPHOSPHAMIDE
     Indication: ANGIOIMMUNOBLASTIC T-CELL LYMPHOMA
  7. DOXORUBICIN [Suspect]
     Active Substance: DOXORUBICIN
     Indication: ANGIOIMMUNOBLASTIC T-CELL LYMPHOMA
     Dosage: UNK
     Route: 065
     Dates: start: 20200608
  8. BRENTUXIMAB VEDOTIN?MPI [Suspect]
     Active Substance: BRENTUXIMAB VEDOTIN
     Indication: ANGIOIMMUNOBLASTIC T-CELL LYMPHOMA
  9. DOXORUBICIN [Suspect]
     Active Substance: DOXORUBICIN
     Indication: PERIPHERAL T-CELL LYMPHOMA UNSPECIFIED
  10. CYCLOPHOSPHAMIDE. [Suspect]
     Active Substance: CYCLOPHOSPHAMIDE
     Indication: PERIPHERAL T-CELL LYMPHOMA UNSPECIFIED
     Dosage: UNK
     Route: 065
     Dates: start: 20200608

REACTIONS (5)
  - Therapy partial responder [Unknown]
  - Haemolytic anaemia [Recovered/Resolved]
  - Neuropathy peripheral [Unknown]
  - Weight decreased [Unknown]
  - Off label use [Unknown]

NARRATIVE: CASE EVENT DATE: 20200608
